FAERS Safety Report 12249758 (Version 5)
Quarter: 2016Q4

REPORT INFORMATION
  Report Type: Spontaneous
  Country: JP (occurrence: JP)
  Receive Date: 20160408
  Receipt Date: 20161003
  Transmission Date: 20170207
  Serious: Yes (Hospitalization)
  Sender: FDA-Public Use
  Company Number: JP-JNJFOC-20160406821

PATIENT
  Age: 83 Year
  Sex: Female
  Weight: 47 kg

DRUGS (16)
  1. SULFAMETHOXAZOL W/TRIMETOPRIM [Concomitant]
     Active Substance: SULFAMETHOXAZOLE\TRIMETHOPRIM
     Route: 048
     Dates: start: 20160405
  2. SULFAMETHOXAZOL W/TRIMETOPRIM [Concomitant]
     Active Substance: SULFAMETHOXAZOLE\TRIMETHOPRIM
     Route: 048
  3. SIMPONI [Suspect]
     Active Substance: GOLIMUMAB
     Indication: RHEUMATOID ARTHRITIS
     Route: 058
     Dates: end: 201602
  4. SENNOSIDE [Concomitant]
     Active Substance: SENNOSIDES
     Route: 048
     Dates: start: 20160421, end: 20160421
  5. MINEBASE [Concomitant]
     Indication: PULMONARY TUBERCULOSIS
     Route: 048
     Dates: start: 20160331, end: 20160405
  6. LOXOPROFEN [Concomitant]
     Active Substance: LOXOPROFEN
     Indication: RHEUMATOID ARTHRITIS
     Route: 048
     Dates: start: 20160304
  7. LANSOPRAZOLE. [Concomitant]
     Active Substance: LANSOPRAZOLE
     Indication: PROPHYLAXIS AGAINST GASTROINTESTINAL ULCER
     Dosage: (AT MORNING)
     Route: 048
     Dates: start: 20160304
  8. FERROUS CITRATE NA [Concomitant]
     Active Substance: SODIUM FERROUS CITRATE
     Indication: ANAEMIA
     Route: 048
     Dates: start: 20160304
  9. KAKKONTO [Concomitant]
     Active Substance: HERBALS
     Indication: UPPER RESPIRATORY TRACT INFLAMMATION
     Route: 061
     Dates: start: 20160325, end: 20160327
  10. METHOTREXATE. [Suspect]
     Active Substance: METHOTREXATE
     Indication: RHEUMATOID ARTHRITIS
     Dosage: ( 1MG-2MG )
     Route: 048
     Dates: end: 20160405
  11. FOLIC ACID. [Concomitant]
     Active Substance: FOLIC ACID
     Route: 048
  12. SENNOSIDE [Concomitant]
     Active Substance: SENNOSIDES
     Route: 048
     Dates: start: 20160329, end: 20160329
  13. THERADIA [Concomitant]
     Indication: DECUBITUS ULCER
     Route: 061
     Dates: start: 20160401
  14. SIMPONI [Suspect]
     Active Substance: GOLIMUMAB
     Indication: RHEUMATOID ARTHRITIS
     Route: 058
  15. SENNOSIDE [Concomitant]
     Active Substance: SENNOSIDES
     Route: 048
     Dates: start: 20160305, end: 20160305
  16. GEBEN [Concomitant]
     Active Substance: SILVER SULFADIAZINE
     Indication: DECUBITUS ULCER
     Route: 061
     Dates: start: 20160307

REACTIONS (4)
  - Femur fracture [Unknown]
  - Decreased appetite [Not Recovered/Not Resolved]
  - Pulmonary tuberculosis [Recovered/Resolved]
  - Tuberculous pleurisy [Recovered/Resolved]

NARRATIVE: CASE EVENT DATE: 20160204
